FAERS Safety Report 16106377 (Version 1)
Quarter: 2019Q1

REPORT INFORMATION
  Report Type: Spontaneous
  Country: AT (occurrence: AT)
  Receive Date: 20190322
  Receipt Date: 20190322
  Transmission Date: 20190418
  Serious: Yes (Other)
  Sender: FDA-Public Use
  Company Number: AT-EISAI MEDICAL RESEARCH-EC-2019-053853

PATIENT
  Sex: Female

DRUGS (6)
  1. LAMOTRIGINE. [Concomitant]
     Active Substance: LAMOTRIGINE
     Indication: PRODUCT USED FOR UNKNOWN INDICATION
     Dosage: DOSE AND FREQUENCY UNKNOWN
     Route: 065
  2. INOVELON [Suspect]
     Active Substance: RUFINAMIDE
     Dosage: UP-TITRATION (DOSE AND FREQUENCY UNKNOWN)
     Route: 048
     Dates: start: 2018, end: 2018
  3. INOVELON [Suspect]
     Active Substance: RUFINAMIDE
     Route: 048
     Dates: start: 2018
  4. INOVELON [Suspect]
     Active Substance: RUFINAMIDE
     Route: 048
  5. INOVELON [Suspect]
     Active Substance: RUFINAMIDE
     Indication: LENNOX-GASTAUT SYNDROME
     Dosage: DOSE AND FREQUENCY UNKNOWN
     Route: 048
     Dates: start: 2018, end: 2018
  6. VALPROIC ACID. [Concomitant]
     Active Substance: VALPROIC ACID
     Indication: PRODUCT USED FOR UNKNOWN INDICATION
     Dosage: DOSE AND FREQUENCY UNKNOWN
     Route: 065

REACTIONS (3)
  - Ataxia [Recovered/Resolved]
  - Encephalitis [Recovered/Resolved]
  - Nausea [Recovered/Resolved]

NARRATIVE: CASE EVENT DATE: 201812
